FAERS Safety Report 8542514-9 (Version None)
Quarter: 2012Q3

REPORT INFORMATION
  Report Type: 
  Country: None (occurrence: None)
  Receive Date: 20120726
  Receipt Date: 20110809
  Transmission Date: 20120928
  Serious: Yes (Other)
  Sender: FDA-Public Use
  Company Number: US-ASTRAZENECA-2011SE47466

PATIENT
  Age: 31 Year
  Sex: Male

DRUGS (4)
  1. SEROQUEL XR [Suspect]
     Indication: BIPOLAR DISORDER
     Route: 048
  2. NARCOTICS [Suspect]
     Dosage: AS REQUIRED
     Route: 065
  3. TRAMADOL HYDROCHLORIDE [Suspect]
     Route: 065
  4. XANAX [Suspect]
     Route: 065

REACTIONS (1)
  - CONVULSION [None]
